FAERS Safety Report 17347576 (Version 3)
Quarter: 2020Q3

REPORT INFORMATION
  Report Type: Report from Study
  Country: US (occurrence: US)
  Receive Date: 20200129
  Receipt Date: 20200814
  Transmission Date: 20201102
  Serious: Yes (Hospitalization, Other)
  Sender: FDA-Public Use
  Company Number: US-EXELIXIS-CABO-19023471

PATIENT
  Age: 73 Year
  Sex: Male

DRUGS (19)
  1. GABAPENTIN. [Concomitant]
     Active Substance: GABAPENTIN
  2. VITAMIN D [Concomitant]
     Active Substance: VITAMIN D NOS
     Dosage: UNK
  3. INSULIN [Concomitant]
     Active Substance: INSULIN NOS
  4. ACIDOPHILUS [Concomitant]
     Active Substance: LACTOBACILLUS ACIDOPHILUS
  5. TAMOXIFEN CITRATE. [Concomitant]
     Active Substance: TAMOXIFEN CITRATE
  6. IMODIUM A?D [Concomitant]
     Active Substance: LOPERAMIDE HYDROCHLORIDE
  7. CABOMETYX [Suspect]
     Active Substance: CABOZANTINIB S-MALATE
     Dosage: 20 MG, QD
     Route: 048
  8. LEXAPRO [Concomitant]
     Active Substance: ESCITALOPRAM OXALATE
  9. CABOMETYX [Suspect]
     Active Substance: CABOZANTINIB S-MALATE
     Indication: RENAL CANCER
     Dosage: 40 MG, QD
     Route: 048
     Dates: start: 20180330, end: 201804
  10. LEVOTHYROXINE SODIUM. [Concomitant]
     Active Substance: LEVOTHYROXINE SODIUM
  11. CENTRUM SILVER [Concomitant]
     Active Substance: MINERALS\VITAMINS
  12. CABOMETYX [Suspect]
     Active Substance: CABOZANTINIB S-MALATE
     Dosage: 60 MG, QD
     Route: 048
     Dates: start: 201804, end: 202002
  13. SENNA [Concomitant]
     Active Substance: SENNA LEAF\SENNOSIDES\SENNOSIDES A AND B
  14. HYDROCHLOROTHIAZIDE. [Concomitant]
     Active Substance: HYDROCHLOROTHIAZIDE
  15. VICODIN [Concomitant]
     Active Substance: ACETAMINOPHEN\HYDROCODONE BITARTRATE
  16. VITAMIN D3 [Concomitant]
     Active Substance: CHOLECALCIFEROL
  17. OMEPRAZOLE. [Concomitant]
     Active Substance: OMEPRAZOLE
  18. LOVENOX [Concomitant]
     Active Substance: ENOXAPARIN SODIUM
  19. LACTULOSE. [Concomitant]
     Active Substance: LACTULOSE

REACTIONS (3)
  - Cellulitis [Unknown]
  - Bedridden [Unknown]
  - Spinal compression fracture [Unknown]

NARRATIVE: CASE EVENT DATE: 20200806
